FAERS Safety Report 8265386-9 (Version None)
Quarter: 2012Q2

REPORT INFORMATION
  Report Type: 
  Country: None (occurrence: None)
  Receive Date: 20120406
  Receipt Date: 20120403
  Transmission Date: 20120825
  Serious: Yes (Hospitalization, Disabling, Other)
  Sender: FDA-Public Use
  Company Number: US-PFIZER INC-2011174714

PATIENT
  Sex: Male

DRUGS (2)
  1. CLONAZEPAM [Concomitant]
     Indication: ANXIETY
     Dosage: 1 MG, UNK
     Dates: start: 20060101
  2. CHANTIX [Suspect]
     Indication: SMOKING CESSATION THERAPY
     Dosage: 1 MG DAILY
     Dates: start: 20090601, end: 20090801

REACTIONS (4)
  - CONVULSION [None]
  - AGGRESSION [None]
  - SCHIZOPHRENIA, PARANOID TYPE [None]
  - PSYCHOTIC DISORDER [None]
